FAERS Safety Report 10074143 (Version 3)
Quarter: 2014Q2

REPORT INFORMATION
  Report Type: Spontaneous
  Country: IT (occurrence: IT)
  Receive Date: 20140413
  Receipt Date: 20140428
  Transmission Date: 20141212
  Serious: Yes (Hospitalization, Disabling)
  Sender: FDA-Public Use
  Company Number: IT-US-EMD SERONO, INC.-7281266

PATIENT
  Age: 49 Year
  Sex: Female
  Weight: 53 kg

DRUGS (2)
  1. REBIF [Suspect]
     Indication: MULTIPLE SCLEROSIS
     Route: 058
     Dates: start: 20000212, end: 20140311
  2. REBIF [Suspect]
     Indication: IMMUNOMODULATORY THERAPY

REACTIONS (8)
  - Malignant hypertension [Recovered/Resolved with Sequelae]
  - Renal disorder [Recovering/Resolving]
  - Proteinuria [Recovered/Resolved with Sequelae]
  - Retinopathy [Recovered/Resolved with Sequelae]
  - Thrombotic thrombocytopenic purpura [Recovered/Resolved with Sequelae]
  - Thrombocytopenia [Recovered/Resolved with Sequelae]
  - Anaemia [Recovered/Resolved with Sequelae]
  - Headache [Unknown]
